FAERS Safety Report 15537474 (Version 2)
Quarter: 2019Q1

REPORT INFORMATION
  Report Type: Spontaneous
  Country: IT (occurrence: IT)
  Receive Date: 20181022
  Receipt Date: 20190109
  Transmission Date: 20190417
  Serious: Yes (Other)
  Sender: FDA-Public Use
  Company Number: IT-PFIZER INC-2018424538

PATIENT
  Age: 72 Year
  Sex: Female

DRUGS (8)
  1. CORTISONE [Concomitant]
     Active Substance: CORTISONE\HYDROCORTISONE
  2. XGEVA [Concomitant]
     Active Substance: DENOSUMAB
     Dates: start: 20151104, end: 20180711
  3. ACETAMINOPHEN AND CODEINE [Concomitant]
     Active Substance: ACETAMINOPHEN\CODEINE PHOSPHATE
  4. FEMARA [Concomitant]
     Active Substance: LETROZOLE
     Dates: start: 20171025, end: 20180131
  5. SLOWMET [Concomitant]
     Active Substance: METFORMIN HYDROCHLORIDE
  6. DELTACORTENE [Concomitant]
     Active Substance: PREDNISONE
  7. IBRANCE [Suspect]
     Active Substance: PALBOCICLIB
     Indication: BREAST CANCER
     Dosage: 125 MG, 1X/DAY
     Route: 048
     Dates: start: 20171025, end: 20180131
  8. ROVIGON [Concomitant]

REACTIONS (10)
  - Anaemia [Recovered/Resolved]
  - Nausea [Recovered/Resolved]
  - Asthenia [Recovered/Resolved]
  - Vomiting [Recovered/Resolved]
  - Conjunctival irritation [Recovered/Resolved]
  - Thrombocytopenia [Recovered/Resolved]
  - Neutropenia [Recovered/Resolved]
  - Vulvovaginal inflammation [Recovered/Resolved]
  - Stomatitis [Recovered/Resolved]
  - Stomatitis [Recovered/Resolved]

NARRATIVE: CASE EVENT DATE: 20171110
